FAERS Safety Report 6071715-7 (Version None)
Quarter: 2009Q1

REPORT INFORMATION
  Report Type: 
  Country: None (occurrence: None)
  Receive Date: 20090209
  Receipt Date: 20090209
  Transmission Date: 20090719
  Serious: Yes (Hospitalization)
  Sender: FDA-Public Use
  Company Number: None

PATIENT
  Age: 67 Year
  Sex: Male

DRUGS (1)
  1. METOPROLOL TARTRATE [Suspect]
     Indication: HYPERTENSION
     Dosage: 50 MG BID PO
     Route: 048
     Dates: start: 20090102, end: 20090205

REACTIONS (5)
  - BRADYCARDIA [None]
  - CHEST PAIN [None]
  - CONDITION AGGRAVATED [None]
  - DRUG INTOLERANCE [None]
  - DRUG TOXICITY [None]
